FAERS Safety Report 6893971-5 (Version None)
Quarter: 2010Q3

REPORT INFORMATION
  Report Type: 
  Country: None (occurrence: None)
  Receive Date: 20100802
  Receipt Date: 20100727
  Transmission Date: 20110219
  Serious: No
  Sender: FDA-Public Use
  Company Number: 2008BI030090

PATIENT
  Sex: Female

DRUGS (2)
  1. TYSABRI [Suspect]
     Indication: MULTIPLE SCLEROSIS
     Route: 042
     Dates: start: 20071107
  2. TYSABRI [Suspect]
     Route: 042
     Dates: end: 20100125

REACTIONS (17)
  - ARTHRALGIA [None]
  - ASTHENIA [None]
  - BLOOD PRESSURE INCREASED [None]
  - DRUG DELIVERY DEVICE IMPLANTATION [None]
  - FATIGUE [None]
  - FUNGAL TEST POSITIVE [None]
  - INFECTIOUS MONONUCLEOSIS [None]
  - MUSCLE SPASMS [None]
  - MUSCULOSKELETAL STIFFNESS [None]
  - MYALGIA [None]
  - PAIN [None]
  - RASH PAPULAR [None]
  - TEMPERATURE INTOLERANCE [None]
  - TREMOR [None]
  - URINARY TRACT INFECTION [None]
  - VAGINAL INFECTION [None]
  - VULVOVAGINAL MYCOTIC INFECTION [None]
